FAERS Safety Report 23048884 (Version 1)
Quarter: 2023Q4

REPORT INFORMATION
  Report Type: Report from Study
  Country: US (occurrence: US)
  Receive Date: 20231010
  Receipt Date: 20231010
  Transmission Date: 20240109
  Serious: Yes (Other)
  Sender: FDA-Public Use
  Company Number: US-GILEAD-2023-0646441

PATIENT
  Sex: Female

DRUGS (1)
  1. AZTREONAM LYSINE [Suspect]
     Active Substance: AZTREONAM LYSINE
     Indication: Respiratory tract malformation
     Dosage: 75 MG, TID, VIA ALTERA NEBULIZER, FOR 28 DAYS ON AND 28 D
     Route: 055

REACTIONS (2)
  - Cystic fibrosis [Unknown]
  - Illness [Unknown]
